FAERS Safety Report 25239143 (Version 1)
Quarter: 2025Q2

REPORT INFORMATION
  Report Type: Other
  Country: US (occurrence: US)
  Receive Date: 20250425
  Receipt Date: 20250425
  Transmission Date: 20250717
  Serious: Yes (Hospitalization, Other)
  Sender: ANI
  Company Number: US-ANIPHARMA-022503

PATIENT
  Age: 73 Year
  Sex: Male

DRUGS (10)
  1. LEUCOVORIN [Suspect]
     Active Substance: LEUCOVORIN\LEUCOVORIN CALCIUM
     Indication: Gastric cancer
  2. FLUOROURACIL [Concomitant]
     Active Substance: FLUOROURACIL
     Indication: Gastric cancer
  3. OXALIPLATIN [Concomitant]
     Active Substance: OXALIPLATIN
     Indication: Gastric cancer
  4. CAPECITABINE [Concomitant]
     Active Substance: CAPECITABINE
     Indication: Gastric cancer
  5. PEMBROLIZUMAB [Concomitant]
     Active Substance: PEMBROLIZUMAB
     Indication: Gastric cancer
  6. LEUCOVORIN [Suspect]
     Active Substance: LEUCOVORIN\LEUCOVORIN CALCIUM
     Indication: Metastasis
  7. FLUOROURACIL [Concomitant]
     Active Substance: FLUOROURACIL
     Indication: Metastasis
  8. OXALIPLATIN [Concomitant]
     Active Substance: OXALIPLATIN
     Indication: Metastasis
  9. CAPECITABINE [Concomitant]
     Active Substance: CAPECITABINE
     Indication: Metastasis
  10. PEMBROLIZUMAB [Concomitant]
     Active Substance: PEMBROLIZUMAB
     Indication: Metastasis

REACTIONS (1)
  - Tumour lysis syndrome [Unknown]
